FAERS Safety Report 7373827-4 (Version None)
Quarter: 2011Q1

REPORT INFORMATION
  Report Type: 
  Country: None (occurrence: None)
  Receive Date: 20110325
  Receipt Date: 20110318
  Transmission Date: 20110831
  Serious: Yes (Other)
  Sender: FDA-Public Use
  Company Number: US-PFIZER INC-2011005644

PATIENT
  Sex: Female

DRUGS (12)
  1. GABAPENTIN [Concomitant]
     Indication: PSYCHOTIC DISORDER
  2. GEODON [Suspect]
     Indication: PSYCHOTIC DISORDER
  3. CYMBALTA [Concomitant]
     Indication: PSYCHOTIC DISORDER
  4. GABAPENTIN [Concomitant]
     Indication: PAIN
  5. GABAPENTIN [Concomitant]
     Indication: BIPOLAR DISORDER
  6. CYMBALTA [Concomitant]
     Indication: BIPOLAR DISORDER
  7. LAMICTAL [Concomitant]
     Indication: AFFECTIVE DISORDER
     Dosage: 300 MG, UNK
  8. GEODON [Suspect]
     Indication: BIPOLAR DISORDER
     Dosage: 200 MG, 1X/DAY
     Route: 048
     Dates: start: 20091026, end: 20110211
  9. CYMBALTA [Concomitant]
     Indication: ANXIETY DISORDER
     Dosage: 60 MG, UNK
  10. LAMICTAL [Concomitant]
     Indication: PSYCHOTIC DISORDER
  11. LAMICTAL [Concomitant]
     Indication: BIPOLAR DISORDER
  12. GABAPENTIN [Concomitant]
     Indication: ANXIETY
     Dosage: 300 MG, 3X/DAY

REACTIONS (1)
  - TARDIVE DYSKINESIA [None]
